FAERS Safety Report 8665518 (Version 2)
Quarter: 2012Q4

REPORT INFORMATION
  Report Type: Report from Study
  Country: US (occurrence: None)
  Receive Date: 20120629
  Receipt Date: 20120906
  Transmission Date: 20130627
  Serious: Yes (Hospitalization)
  Sender: FDA-Public Use
  Company Number: 135667-1

PATIENT
  Age: 60 Year
  Sex: Female
  Weight: 74 kg

DRUGS (1)
  1. LEUCOVORIN CALCIUM [Suspect]
     Indication: COLORECTAL CANCER METASTATIC
     Dates: start: 20120326

REACTIONS (9)
  - Pneumothorax [None]
  - Chills [None]
  - Sputum discoloured [None]
  - VIIth nerve paralysis [None]
  - Sinus tachycardia [None]
  - Activated partial thromboplastin time prolonged [None]
  - Pleural effusion [None]
  - Hemiparesis [None]
  - Chest pain [None]
